FAERS Safety Report 24396985 (Version 1)
Quarter: 2024Q4

REPORT INFORMATION
  Report Type: Spontaneous
  Country: US (occurrence: US)
  Receive Date: 20241004
  Receipt Date: 20241004
  Transmission Date: 20250115
  Serious: Yes (Hospitalization, Other)
  Sender: APOTEX
  Company Number: US-APOTEX-2024AP011569

PATIENT
  Age: 38 Year
  Sex: Male

DRUGS (15)
  1. DIVALPROEX SODIUM [Suspect]
     Active Substance: DIVALPROEX SODIUM
     Indication: Angelman^s syndrome
     Dosage: UNK
     Route: 065
  2. DIVALPROEX SODIUM [Suspect]
     Active Substance: DIVALPROEX SODIUM
     Indication: Seizure
  3. DIVALPROEX SODIUM [Suspect]
     Active Substance: DIVALPROEX SODIUM
     Indication: Myoclonus
  4. CLOBAZAM [Suspect]
     Active Substance: CLOBAZAM
     Indication: Seizure
     Dosage: UNK
     Route: 065
  5. CLOBAZAM [Suspect]
     Active Substance: CLOBAZAM
     Indication: Angelman^s syndrome
  6. CLOBAZAM [Suspect]
     Active Substance: CLOBAZAM
     Indication: Myoclonus
  7. LACOSAMIDE [Suspect]
     Active Substance: LACOSAMIDE
     Indication: Angelman^s syndrome
     Dosage: UNK
     Route: 065
  8. LACOSAMIDE [Suspect]
     Active Substance: LACOSAMIDE
     Indication: Seizure
  9. LACOSAMIDE [Suspect]
     Active Substance: LACOSAMIDE
     Indication: Myoclonus
  10. LEVETIRACETAM [Concomitant]
     Active Substance: LEVETIRACETAM
     Indication: Angelman^s syndrome
     Dosage: UNK
     Route: 065
  11. LEVETIRACETAM [Concomitant]
     Active Substance: LEVETIRACETAM
     Indication: Seizure
  12. LEVETIRACETAM [Concomitant]
     Active Substance: LEVETIRACETAM
     Indication: Myoclonus
  13. LEVOCARNITINE [Concomitant]
     Active Substance: LEVOCARNITINE
     Indication: Angelman^s syndrome
     Dosage: UNK
     Route: 065
  14. LEVOCARNITINE [Concomitant]
     Active Substance: LEVOCARNITINE
     Indication: Seizure
  15. LEVOCARNITINE [Concomitant]
     Active Substance: LEVOCARNITINE
     Indication: Myoclonus

REACTIONS (8)
  - Leukocytosis [Unknown]
  - Respiratory failure [Unknown]
  - Metabolic alkalosis [Unknown]
  - Hypotension [Unknown]
  - Hypothermia [Unknown]
  - Hyperammonaemia [Recovering/Resolving]
  - Metabolic encephalopathy [Unknown]
  - Pyrexia [Unknown]
